FAERS Safety Report 8581150-5 (Version None)
Quarter: 2012Q3

REPORT INFORMATION
  Report Type: 
  Country: None (occurrence: None)
  Receive Date: 20120809
  Receipt Date: 20120802
  Transmission Date: 20120928
  Serious: Yes (Other)
  Sender: FDA-Public Use
  Company Number: US-COVIDIEN/TYCO HEALTHCARE/MALLINCKRODT-T201200708

PATIENT
  Sex: Female

DRUGS (1)
  1. OXYCODONE HCL [Suspect]
     Indication: BACK PAIN
     Dosage: 20 PER DAY

REACTIONS (5)
  - MATERNAL EXPOSURE DURING PREGNANCY [None]
  - WITHDRAWAL SYNDROME [None]
  - DEPENDENCE [None]
  - DRUG ABUSE [None]
  - EUPHORIC MOOD [None]
